FAERS Safety Report 9729986 (Version 2)
Quarter: 2014Q1

REPORT INFORMATION
  Report Type: Spontaneous
  Country: GB (occurrence: None)
  Receive Date: 20131203
  Receipt Date: 20140210
  Transmission Date: 20141002
  Serious: Yes (Other)
  Sender: FDA-Public Use
  Company Number: AUR-APL-2013-09498

PATIENT
  Age: 41 Year
  Sex: Male

DRUGS (3)
  1. RISPERIDONE (RISPERIDONE) [Suspect]
     Indication: ABNORMAL BEHAVIOUR
     Dosage: 3 MG, (1.5 MG 2 IN 1 D), UNKNOWN
  2. RISPERIDONE (RISPERIDONE) [Suspect]
     Indication: LEARNING DISABILITY
     Dosage: 3 MG, (1.5 MG 2 IN 1 D), UNKNOWN
  3. LEMSIP MAX (NEO-SYNEPHRINE COMPOUND COLD) [Concomitant]

REACTIONS (5)
  - Off label use [None]
  - Therapeutic response unexpected [None]
  - Dysuria [None]
  - Drug interaction [None]
  - Urinary incontinence [None]
